FAERS Safety Report 7327655-6 (Version None)
Quarter: 2011Q1

REPORT INFORMATION
  Report Type: 
  Country: None (occurrence: None)
  Receive Date: 20110303
  Receipt Date: 20091215
  Transmission Date: 20110831
  Serious: No
  Sender: FDA-Public Use
  Company Number: US-BAYER-200943793NA

PATIENT
  Sex: Female
  Weight: 137.87 kg

DRUGS (4)
  1. TRAMADOL HCL [Concomitant]
     Indication: PRODUCT USED FOR UNKNOWN INDICATION
  2. MOBIC [Concomitant]
     Indication: PRODUCT USED FOR UNKNOWN INDICATION
  3. MIRENA [Suspect]
     Indication: MENORRHAGIA
     Dosage: 20 ?G/D, CONT
     Route: 015
     Dates: start: 20090701
  4. DOXYCYCLINE [Concomitant]
     Dates: start: 20091207

REACTIONS (4)
  - PELVIC PAIN [None]
  - VAGINAL HAEMORRHAGE [None]
  - ARTHRALGIA [None]
  - DYSMENORRHOEA [None]
